FAERS Safety Report 4481219-0 (Version None)
Quarter: 2004Q4

REPORT INFORMATION
  Report Type: 
  Country: None (occurrence: None)
  Receive Date: 20040923
  Receipt Date: 20040714
  Transmission Date: 20050328
  Serious: No
  Sender: FDA-Public Use
  Company Number: USA040157236

PATIENT
  Age: 75 Year
  Sex: Female
  Weight: 69 kg

DRUGS (2)
  1. FORTEO [Suspect]
     Indication: OSTEOPOROSIS
     Dosage: 20 UG DAY
     Dates: start: 20040119
  2. FLEXERIL [Concomitant]

REACTIONS (1)
  - INJECTION SITE HAEMORRHAGE [None]
